FAERS Safety Report 7033266-2 (Version None)
Quarter: 2010Q4

REPORT INFORMATION
  Report Type: 
  Country: None (occurrence: None)
  Receive Date: 20101004
  Receipt Date: 20100921
  Transmission Date: 20110411
  Serious: Yes (Hospitalization)
  Sender: FDA-Public Use
  Company Number: 015893

PATIENT
  Age: 19 Year
  Sex: Female

DRUGS (5)
  1. LACOSAMIDE [Suspect]
     Indication: CONVULSION
     Dosage: 200 MG BID ORAL
     Route: 048
     Dates: start: 20090101
  2. LAMOTRIGINE [Concomitant]
  3. PRENATAL VITAMINS /01549301 [Concomitant]
  4. ASPIRIN /01428701 [Concomitant]
  5. FOLIC ACID [Concomitant]

REACTIONS (9)
  - CARDIAC ARREST [None]
  - CONVULSION [None]
  - DRUG EXPOSURE DURING PREGNANCY [None]
  - DYSPEPSIA [None]
  - HEADACHE [None]
  - HEART RATE INCREASED [None]
  - NAUSEA [None]
  - PREGNANCY [None]
  - TREATMENT NONCOMPLIANCE [None]
